FAERS Safety Report 8390719-2 (Version None)
Quarter: 2012Q2

REPORT INFORMATION
  Report Type: 
  Country: None (occurrence: None)
  Receive Date: 20120515
  Receipt Date: 20120509
  Transmission Date: 20120825
  Serious: Yes (Hospitalization, Other)
  Sender: FDA-Public Use
  Company Number: 2012SP024611

PATIENT
  Age: 62 Year
  Sex: Male

DRUGS (3)
  1. INTRON A [Suspect]
     Indication: MALIGNANT MELANOMA
     Dosage: QD;IV QOD;SC
     Route: 042
     Dates: start: 20111227
  2. INTRON A [Suspect]
     Indication: MALIGNANT MELANOMA
     Dosage: QD;IV QOD;SC
     Route: 042
     Dates: end: 20120323
  3. DULOXETINE HYDROCHLORIDE [Concomitant]

REACTIONS (3)
  - HYPONATRAEMIA [None]
  - HEMIPARESIS [None]
  - FACIAL PARESIS [None]
